FAERS Safety Report 18407501 (Version 1)
Quarter: 2020Q4

REPORT INFORMATION
  Report Type: Spontaneous
  Country: US (occurrence: US)
  Receive Date: 20201020
  Receipt Date: 20201020
  Transmission Date: 20210114
  Serious: No
  Sender: FDA-Public Use
  Company Number: US-FRESENIUS KABI-FK202010844

PATIENT
  Age: 13 Year
  Sex: Female

DRUGS (2)
  1. PENTAM 300 [Suspect]
     Active Substance: PENTAMIDINE ISETHIONATE
     Indication: PNEUMONIA
     Dosage: INTENDED DOSE OF 200 MILLIGRAMS
     Route: 042
     Dates: start: 20201015, end: 20201015
  2. PENTAM 300 [Suspect]
     Active Substance: PENTAMIDINE ISETHIONATE
     Indication: PROPHYLAXIS

REACTIONS (5)
  - Accidental underdose [Recovering/Resolving]
  - Extravasation [Recovering/Resolving]
  - Injection site irritation [Recovering/Resolving]
  - Intentional product use issue [Recovering/Resolving]
  - Injection site pain [Recovering/Resolving]

NARRATIVE: CASE EVENT DATE: 20201015
